FAERS Safety Report 10523338 (Version 2)
Quarter: 2014Q4

REPORT INFORMATION
  Report Type: Spontaneous
  Country: AR (occurrence: AR)
  Receive Date: 20141016
  Receipt Date: 20141016
  Transmission Date: 20150528
  Serious: Yes (Hospitalization)
  Sender: FDA-Public Use
  Company Number: AR-ELI_LILLY_AND_COMPANY-AR201409009295

PATIENT
  Age: 62 Year
  Sex: Male

DRUGS (7)
  1. CLOPIDOGREL [Concomitant]
     Active Substance: CLOPIDOGREL BISULFATE
  2. ATORVASTATIN [Concomitant]
     Active Substance: ATORVASTATIN
  3. HUMULIN N [Suspect]
     Active Substance: INSULIN HUMAN
     Indication: PRODUCT USED FOR UNKNOWN INDICATION
     Dosage: 6 DF, TID
     Route: 065
     Dates: start: 1994
  4. HUMULIN R [Suspect]
     Active Substance: INSULIN HUMAN
     Dosage: 10 DF, EACH EVENING
     Route: 065
     Dates: start: 1994
  5. HUMULIN R [Suspect]
     Active Substance: INSULIN HUMAN
     Dosage: 24 DF, QD
     Route: 065
     Dates: start: 1994
  6. METFORMIN [Concomitant]
     Active Substance: METFORMIN HYDROCHLORIDE
  7. HUMULIN R [Suspect]
     Active Substance: INSULIN HUMAN
     Indication: PRODUCT USED FOR UNKNOWN INDICATION
     Dosage: 18 DF, EACH MORNING
     Route: 065
     Dates: start: 1994

REACTIONS (4)
  - Incorrect dose administered [Not Recovered/Not Resolved]
  - Diabetic complication [Unknown]
  - Injection site pain [Not Recovered/Not Resolved]
  - Injection site bruising [Not Recovered/Not Resolved]

NARRATIVE: CASE EVENT DATE: 2004
